FAERS Safety Report 10015587 (Version 2)
Quarter: 2014Q4

REPORT INFORMATION
  Report Type: Spontaneous
  Country: US (occurrence: US)
  Receive Date: 20140317
  Receipt Date: 20141110
  Transmission Date: 20150528
  Serious: Yes (Other)
  Sender: FDA-Public Use
  Company Number: US-BAYER-2014-036420

PATIENT
  Age: 28 Year
  Sex: Female
  Weight: 55.78 kg

DRUGS (1)
  1. MIRENA [Suspect]
     Active Substance: LEVONORGESTREL
     Indication: CONTRACEPTION
     Dosage: 20 MCG/24HR, CONT
     Route: 015
     Dates: start: 201009, end: 201206

REACTIONS (10)
  - Injury [None]
  - Uterine injury [None]
  - Uterine perforation [None]
  - Pain [None]
  - Complication of delivery [None]
  - Emotional distress [None]
  - Depression [None]
  - Medical device complication [None]
  - Depressed mood [None]
  - Intra-uterine contraceptive device removal [None]

NARRATIVE: CASE EVENT DATE: 201205
